FAERS Safety Report 23702859 (Version 1)
Quarter: 2024Q2

REPORT INFORMATION
  Report Type: Spontaneous
  Country: US (occurrence: US)
  Receive Date: 20240403
  Receipt Date: 20240403
  Transmission Date: 20240716
  Serious: No
  Sender: FDA-Public Use
  Company Number: US-LUPIN PHARMACEUTICALS INC.-2024-02766

PATIENT

DRUGS (2)
  1. MOXIFLOXACIN HYDROCHLORIDE [Suspect]
     Active Substance: MOXIFLOXACIN HYDROCHLORIDE\MOXIFLOXACIN HYDROCHLORIDE MONOHYDRATE
     Indication: Corneal disorder
     Dosage: 1 DROP, TID, (1 DROP 3 TIMES DAILY FOR 5 DAYS IN RIGHT EYE)
     Dates: start: 20240322, end: 20240326
  2. REFRESH OPTIVE [Concomitant]
     Active Substance: CARBOXYMETHYLCELLULOSE SODIUM\GLYCERIN
     Indication: Product used for unknown indication
     Dosage: UNK
     Route: 065

REACTIONS (3)
  - Extra dose administered [Unknown]
  - Drug effective for unapproved indication [Unknown]
  - Off label use [Unknown]
